FAERS Safety Report 6167658-0 (Version None)
Quarter: 2009Q2

REPORT INFORMATION
  Report Type: 
  Country: None (occurrence: None)
  Receive Date: 20090424
  Receipt Date: 20090420
  Transmission Date: 20091009
  Serious: Yes (Hospitalization)
  Sender: FDA-Public Use
  Company Number: PHHY2009JP11768

PATIENT
  Age: 76 Year
  Sex: Female

DRUGS (2)
  1. VOLTAREN [Suspect]
     Indication: ABDOMINAL PAIN LOWER
     Dosage: UNK
  2. LOXOPROFEN [Concomitant]
     Indication: ABDOMINAL PAIN LOWER
     Dosage: 180MG PER DAY

REACTIONS (9)
  - ANAEMIA [None]
  - FAECES DISCOLOURED [None]
  - HAEMATOCRIT DECREASED [None]
  - HEART RATE INCREASED [None]
  - ILEAL ULCER [None]
  - PALLOR [None]
  - SMALL INTESTINAL HAEMORRHAGE [None]
  - THERAPEUTIC EMBOLISATION [None]
  - THROMBOSIS [None]
